FAERS Safety Report 10720929 (Version 4)
Quarter: 2016Q1

REPORT INFORMATION
  Report Type: Spontaneous
  Country: US (occurrence: US)
  Receive Date: 20150119
  Receipt Date: 20160226
  Transmission Date: 20160525
  Serious: No
  Sender: FDA-Public Use
  Company Number: US-PFIZER INC-2015016051

PATIENT
  Sex: Female

DRUGS (8)
  1. ZITHROMAX [Suspect]
     Active Substance: AZITHROMYCIN DIHYDRATE
     Indication: INFECTION
     Dosage: UNK
     Dates: end: 2000
  2. LEVAQUIN [Suspect]
     Active Substance: LEVOFLOXACIN
     Indication: INFECTION
     Dosage: UNK
  3. PROVENTIL [Suspect]
     Active Substance: ALBUTEROL
     Indication: ASTHMA
     Dosage: UNK
     Dates: end: 2010
  4. ASPIRIN. [Suspect]
     Active Substance: ASPIRIN
     Indication: ANTICOAGULANT THERAPY
     Dosage: UNK
     Dates: end: 2009
  5. PROCARDIA [Suspect]
     Active Substance: NIFEDIPINE
     Indication: CARDIAC DISORDER
     Dosage: UNK
     Dates: end: 1995
  6. CIPRO [Suspect]
     Active Substance: CIPROFLOXACIN HYDROCHLORIDE
     Indication: INFECTION
     Dosage: UNK
     Dates: end: 2008
  7. IODINE [Suspect]
     Active Substance: IODINE
     Dosage: UNK
  8. CLONIDINE. [Suspect]
     Active Substance: CLONIDINE
     Indication: CARDIAC DISORDER
     Dosage: UNK

REACTIONS (8)
  - Rash [Unknown]
  - Vomiting [Unknown]
  - Asthma [Unknown]
  - Urticaria [Unknown]
  - Drug hypersensitivity [Unknown]
  - Nausea [Unknown]
  - Dyspnoea [Unknown]
  - Diarrhoea [Unknown]
